FAERS Safety Report 14462945 (Version 1)
Quarter: 2018Q1

REPORT INFORMATION
  Report Type: Spontaneous
  Country: US (occurrence: US)
  Receive Date: 20180130
  Receipt Date: 20180130
  Transmission Date: 20180509
  Serious: No
  Sender: FDA-Public Use
  Company Number: US-MIST-TIR-2018-0010

PATIENT
  Age: 60 Year
  Sex: Female
  Weight: 125.76 kg

DRUGS (3)
  1. HYDROCHLOROTHIAZIDE. [Concomitant]
     Active Substance: HYDROCHLOROTHIAZIDE
     Indication: PRODUCT USED FOR UNKNOWN INDICATION
     Dosage: 12.5MG
  2. TIROSINT [Suspect]
     Active Substance: LEVOTHYROXINE SODIUM
     Indication: HYPOTHYROIDISM
     Dosage: 100MCG DAILY
     Route: 048
     Dates: start: 201710
  3. VYVANSE [Concomitant]
     Active Substance: LISDEXAMFETAMINE DIMESYLATE
     Indication: PRODUCT USED FOR UNKNOWN INDICATION
     Dosage: 70MG

REACTIONS (11)
  - Oedema peripheral [Unknown]
  - Weight increased [Unknown]
  - Dyspnoea [Unknown]
  - Myalgia [Unknown]
  - Pain [Unknown]
  - Gait disturbance [Unknown]
  - Blood pressure fluctuation [Unknown]
  - Peripheral swelling [Unknown]
  - Skin tightness [Unknown]
  - Arthralgia [Unknown]
  - Joint swelling [Unknown]

NARRATIVE: CASE EVENT DATE: 201712
